FAERS Safety Report 16389315 (Version 3)
Quarter: 2019Q2

REPORT INFORMATION
  Report Type: Report from Study
  Country: US (occurrence: US)
  Receive Date: 20190604
  Receipt Date: 20190614
  Transmission Date: 20190711
  Serious: Yes (Other)
  Sender: FDA-Public Use
  Company Number: PHEH2019US023630

PATIENT
  Sex: Male

DRUGS (2)
  1. LASIX [Concomitant]
     Active Substance: FUROSEMIDE
     Indication: PRODUCT USED FOR UNKNOWN INDICATION
     Route: 065
  2. ENTRESTO [Suspect]
     Active Substance: SACUBITRIL\VALSARTAN
     Indication: CARDIAC FAILURE
     Dosage: 2.5 DF, BID
     Route: 048

REACTIONS (8)
  - Pericardial effusion [Unknown]
  - Product prescribing error [Unknown]
  - Muscle spasms [Unknown]
  - Muscle disorder [Unknown]
  - Wrong technique in product usage process [Unknown]
  - Weight increased [Unknown]
  - Decreased appetite [Unknown]
  - Pollakiuria [Unknown]
